FAERS Safety Report 24789718 (Version 1)
Quarter: 2024Q4

REPORT INFORMATION
  Report Type: Spontaneous
  Country: US (occurrence: US)
  Receive Date: 20241230
  Receipt Date: 20241230
  Transmission Date: 20250115
  Serious: Yes (Hospitalization, Other)
  Sender: BIOVITRUM
  Company Number: US-BIOVITRUM-2024-US-016624

PATIENT
  Age: 6 Year
  Sex: Female

DRUGS (15)
  1. ANAKINRA [Suspect]
     Active Substance: ANAKINRA
     Indication: Product used for unknown indication
     Dosage: UNK, EVERY 6 HOURS
     Route: 042
  2. CYCLOSPORINE [Suspect]
     Active Substance: CYCLOSPORINE
     Indication: Juvenile idiopathic arthritis
     Dosage: UNK
     Route: 065
  3. METHYLPREDNISOLONE [Suspect]
     Active Substance: METHYLPREDNISOLONE
     Indication: Haemophagocytic lymphohistiocytosis
     Dosage: 1 MG/KG, BID
     Route: 042
  4. LEVETIRACETAM [Suspect]
     Active Substance: LEVETIRACETAM
     Indication: Seizure
     Dosage: UNK
     Route: 065
  5. VALACYCLOVIR HYDROCHLORIDE [Suspect]
     Active Substance: VALACYCLOVIR HYDROCHLORIDE
     Indication: Prophylaxis
     Dosage: UNK
     Route: 065
  6. AMLODIPINE [Suspect]
     Active Substance: AMLODIPINE BESYLATE
     Indication: Hypertension
     Dosage: UNK
     Route: 065
  7. ENALAPRIL [Suspect]
     Active Substance: ENALAPRIL
     Indication: Hypertension
     Dosage: UNK
     Route: 065
  8. GABAPENTIN [Suspect]
     Active Substance: GABAPENTIN
     Indication: Sedation
     Dosage: UNK
     Route: 065
  9. GABAPENTIN [Suspect]
     Active Substance: GABAPENTIN
     Indication: Delirium
  10. DEXMEDETOMIDINE [Suspect]
     Active Substance: DEXMEDETOMIDINE
     Indication: Sedation
     Dosage: UNK
     Route: 065
  11. DEXMEDETOMIDINE [Suspect]
     Active Substance: DEXMEDETOMIDINE
     Indication: Delirium
  12. RISPERIDONE\TRIHEXYPHENIDYL HYDROCHLORIDE [Suspect]
     Active Substance: RISPERIDONE\TRIHEXYPHENIDYL HYDROCHLORIDE
     Indication: Sedation
     Dosage: UNK
     Route: 065
  13. RISPERIDONE\TRIHEXYPHENIDYL HYDROCHLORIDE [Suspect]
     Active Substance: RISPERIDONE\TRIHEXYPHENIDYL HYDROCHLORIDE
     Indication: Delirium
  14. ITRACONAZOLE\SECNIDAZOLE [Suspect]
     Active Substance: ITRACONAZOLE\SECNIDAZOLE
     Indication: Prophylaxis
     Dosage: UNK
     Route: 065
  15. PENTAMIDINE [Suspect]
     Active Substance: PENTAMIDINE
     Indication: Prophylaxis
     Dosage: UNK
     Route: 065

REACTIONS (9)
  - Pulmonary hypertension [Unknown]
  - Cerebrovascular accident [Unknown]
  - Posterior reversible encephalopathy syndrome [Unknown]
  - Haemophagocytic lymphohistiocytosis [Unknown]
  - Serum ferritin increased [Unknown]
  - Platelet count decreased [Unknown]
  - Pyrexia [Unknown]
  - Inflammatory marker increased [Unknown]
  - Product use in unapproved indication [Unknown]
